FAERS Safety Report 5560517-3 (Version None)
Quarter: 2007Q4

REPORT INFORMATION
  Report Type: 
  Country: None (occurrence: None)
  Receive Date: 20071215
  Receipt Date: 20071110
  Transmission Date: 20080405
  Serious: No
  Sender: FDA-Public Use
  Company Number: US-ABBOTT-07P-163-0424760-00

PATIENT
  Sex: Male
  Weight: 64.922 kg

DRUGS (10)
  1. HUMIRA [Suspect]
     Indication: CROHN'S DISEASE
     Dosage: LOADING DOSE
     Route: 058
     Dates: start: 20070901, end: 20070901
  2. HUMIRA [Suspect]
     Route: 058
     Dates: start: 20070915, end: 20070915
  3. HUMIRA [Suspect]
     Route: 058
     Dates: start: 20070929
  4. PREDNISONE [Suspect]
     Indication: CROHN'S DISEASE
     Dates: start: 20070501, end: 20070901
  5. CLOPIDOGREL [Concomitant]
     Indication: MYOCARDIAL INFARCTION
  6. ATENOLOL [Concomitant]
     Indication: MYOCARDIAL INFARCTION
  7. VITROIN [Concomitant]
     Indication: BLOOD CHOLESTEROL INCREASED
  8. ALTRIM [Concomitant]
     Indication: PAIN
  9. NEUTROIM [Concomitant]
     Indication: NEURALGIA
  10. FENOFIBRATE [Concomitant]
     Indication: BLOOD CHOLESTEROL INCREASED

REACTIONS (4)
  - COUGH [None]
  - NASOPHARYNGITIS [None]
  - VIRAL INFECTION [None]
  - WEIGHT INCREASED [None]
